FAERS Safety Report 5294416-1 (Version None)
Quarter: 2007Q2

REPORT INFORMATION
  Report Type: 
  Country: None (occurrence: None)
  Receive Date: 20070412
  Receipt Date: 20070402
  Transmission Date: 20071010
  Serious: Yes (Life-Threatening, Hospitalization)
  Sender: FDA-Public Use
  Company Number: GB-BAYER-200610485BNE

PATIENT
  Age: 58 Year
  Sex: Female

DRUGS (7)
  1. CIPROFLOXACIN [Suspect]
     Indication: GASTROENTERITIS
     Dosage: TOTAL DAILY DOSE: 500 MG
     Route: 048
     Dates: start: 20060109, end: 20060112
  2. PROCHLORPERAZINE [Concomitant]
     Dosage: TOTAL DAILY DOSE: 9 MG
     Route: 048
  3. MEBEVERINE [Concomitant]
     Dosage: TOTAL DAILY DOSE: 405 MG
     Route: 048
  4. BENDROFLUAZIDE [Concomitant]
  5. ZOLPIDEM TARTRATE [Concomitant]
  6. ATENOLOL [Concomitant]
  7. LORAZEPAM [Concomitant]

REACTIONS (1)
  - HEPATORENAL SYNDROME [None]
